FAERS Safety Report 4965018-9 (Version None)
Quarter: 2006Q2

REPORT INFORMATION
  Report Type: 
  Country: None (occurrence: None)
  Receive Date: 20060403
  Receipt Date: 20060320
  Transmission Date: 20061013
  Serious: Yes (Other)
  Sender: FDA-Public Use
  Company Number: PHBS2006JP04425

PATIENT
  Age: 71 Year
  Sex: Male

DRUGS (3)
  1. VISUDYNE [Suspect]
     Indication: MACULAR DEGENERATION
     Dates: start: 20060108, end: 20060108
  2. MEVALOTIN [Concomitant]
  3. URINORM [Concomitant]

REACTIONS (6)
  - DISEASE PROGRESSION [None]
  - MACULAR DEGENERATION [None]
  - MACULAR HOLE [None]
  - POST PROCEDURAL COMPLICATION [None]
  - RETINAL DETACHMENT [None]
  - VITREOUS HAEMORRHAGE [None]
